FAERS Safety Report 5639634-5 (Version None)
Quarter: 2008Q1

REPORT INFORMATION
  Report Type: 
  Country: None (occurrence: None)
  Receive Date: 20080222
  Receipt Date: 20080205
  Transmission Date: 20080703
  Serious: Yes (Other)
  Sender: FDA-Public Use
  Company Number: US200802001224

PATIENT
  Age: 40 Year
  Sex: Female

DRUGS (7)
  1. ZYPREXA [Suspect]
     Dosage: 30 MG, DAILY (1/D)
     Dates: start: 20060101
  2. CYMBALTA [Suspect]
     Indication: BIPOLAR DISORDER
     Dosage: 180 MG, DAILY (1/D)
     Dates: start: 20060101
  3. CLONOPIN [Concomitant]
  4. XANAXA (ALPRAZOLAM) [Concomitant]
  5. SEROQUEL [Concomitant]
  6. METHADONE HCL (METHADONE HYDROCHLORIDE) [Concomitant]
  7. PHENERGAN HCL [Concomitant]

REACTIONS (4)
  - LOSS OF CONSCIOUSNESS [None]
  - OVERDOSE [None]
  - SEDATION [None]
  - WEIGHT INCREASED [None]
